FAERS Safety Report 11420345 (Version 1)
Quarter: 2015Q3

REPORT INFORMATION
  Report Type: Spontaneous
  Country: DK (occurrence: DK)
  Receive Date: 20150826
  Receipt Date: 20150826
  Transmission Date: 20151125
  Serious: Yes (Disabling)
  Sender: FDA-Public Use
  Company Number: DK-SA-2015SA127639

PATIENT
  Sex: Female

DRUGS (5)
  1. SENDOXAN [Suspect]
     Active Substance: CYCLOPHOSPHAMIDE
     Indication: BREAST CANCER
     Route: 065
     Dates: start: 20090812
  2. TAXOTERE [Suspect]
     Active Substance: DOCETAXEL
     Indication: BREAST CANCER
     Route: 042
     Dates: start: 20090812
  3. FARMORUBICIN [Suspect]
     Active Substance: EPIRUBICIN HYDROCHLORIDE
     Indication: BREAST CANCER
     Route: 042
     Dates: start: 20090812
  4. TAMOXIFEN [Concomitant]
     Active Substance: TAMOXIFEN
     Dates: end: 20120106
  5. FEMAR [Concomitant]
     Active Substance: LETROZOLE
     Dates: start: 20120106, end: 20130918

REACTIONS (11)
  - Disturbance in attention [Not Recovered/Not Resolved]
  - Skin exfoliation [Unknown]
  - Constipation [Unknown]
  - Cognitive disorder [Not Recovered/Not Resolved]
  - Impaired work ability [Not Recovered/Not Resolved]
  - Sensory disturbance [Unknown]
  - Memory impairment [Not Recovered/Not Resolved]
  - Onychomadesis [Unknown]
  - Vomiting [Unknown]
  - Stress [Unknown]
  - Muscle spasms [Unknown]

NARRATIVE: CASE EVENT DATE: 2009
